FAERS Safety Report 6983542-4 (Version None)
Quarter: 2010Q3

REPORT INFORMATION
  Report Type: 
  Country: None (occurrence: None)
  Receive Date: 20100914
  Receipt Date: 20100914
  Transmission Date: 20110219
  Serious: No
  Sender: FDA-Public Use
  Company Number: None

PATIENT
  Age: 60 Year
  Sex: Male
  Weight: 97.5234 kg

DRUGS (1)
  1. RISPERIDONE [Suspect]
     Dosage: 3 MG DAY PO
     Route: 048

REACTIONS (1)
  - WEIGHT INCREASED [None]
